FAERS Safety Report 7649938-2 (Version None)
Quarter: 2011Q3

REPORT INFORMATION
  Report Type: 
  Country: None (occurrence: None)
  Receive Date: 20110802
  Receipt Date: 20110728
  Transmission Date: 20111222
  Serious: Yes (Other)
  Sender: FDA-Public Use
  Company Number: US-BRISTOL-MYERS SQUIBB COMPANY-15932940

PATIENT
  Sex: Male
  Weight: 77 kg

DRUGS (2)
  1. PROTONIX [Concomitant]
  2. AVAPRO [Suspect]
     Indication: BLOOD PRESSURE INCREASED

REACTIONS (2)
  - GLUCOSE TOLERANCE IMPAIRED [None]
  - LOSS OF CONSCIOUSNESS [None]
